FAERS Safety Report 5761188-3 (Version None)
Quarter: 2008Q2

REPORT INFORMATION
  Report Type: 
  Country: None (occurrence: None)
  Receive Date: 20080606
  Receipt Date: 20080529
  Transmission Date: 20081010
  Serious: Yes (Hospitalization)
  Sender: FDA-Public Use
  Company Number: B0523608A

PATIENT
  Age: 52 Year
  Sex: Male
  Weight: 97 kg

DRUGS (10)
  1. ALLOPURINOL [Suspect]
     Dosage: 200MG PER DAY
     Route: 048
     Dates: start: 20080111, end: 20080225
  2. AMOXICILLIN [Suspect]
     Indication: TORTICOLLIS
     Route: 048
     Dates: start: 20080215, end: 20080219
  3. COLCHICINE [Suspect]
     Route: 048
     Dates: start: 20071201, end: 20080225
  4. TAVANIC [Concomitant]
     Dates: start: 20080219
  5. TRIFLUCAN [Concomitant]
     Dates: start: 20080219
  6. LERCAN [Concomitant]
  7. VALSARTAN AND HYDROCHLOROTHIAZIDE [Concomitant]
  8. FUROSEMIDE [Concomitant]
  9. DIFFU K [Concomitant]
  10. TIMOPTIC [Concomitant]
     Indication: GLAUCOMA

REACTIONS (26)
  - ACUTE GENERALISED EXANTHEMATOUS PUSTULOSIS [None]
  - ALANINE AMINOTRANSFERASE INCREASED [None]
  - ARTHRALGIA [None]
  - ASPARTATE AMINOTRANSFERASE INCREASED [None]
  - BLOOD CREATININE INCREASED [None]
  - BLOOD LACTATE DEHYDROGENASE INCREASED [None]
  - C-REACTIVE PROTEIN INCREASED [None]
  - COAGULATION FACTOR V LEVEL INCREASED [None]
  - COUGH [None]
  - DRUG RASH WITH EOSINOPHILIA AND SYSTEMIC SYMPTOMS [None]
  - EOSINOPHIL COUNT INCREASED [None]
  - GENERAL PHYSICAL HEALTH DETERIORATION [None]
  - HAEMOGLOBIN DECREASED [None]
  - HEART RATE INCREASED [None]
  - HYPOTENSION [None]
  - LEUKOCYTOSIS [None]
  - LYMPHADENOPATHY [None]
  - LYMPHOCYTE COUNT INCREASED [None]
  - NEUTROPHIL COUNT INCREASED [None]
  - PROTHROMBIN LEVEL DECREASED [None]
  - PYREXIA [None]
  - RASH PRURITIC [None]
  - RENAL FAILURE ACUTE [None]
  - SERUM FERRITIN INCREASED [None]
  - TORTICOLLIS [None]
  - TRANSAMINASES INCREASED [None]
